FAERS Safety Report 16404150 (Version 1)
Quarter: 2019Q3

REPORT INFORMATION
  Report Type: Spontaneous
  Country: US (occurrence: US)
  Receive Date: 20190606
  Receipt Date: 20190606
  Transmission Date: 20191004
  Serious: Yes (Hospitalization)
  Sender: FDA-Public Use
  Company Number: None

PATIENT
  Age: 39 Year
  Sex: Female
  Weight: 103.5 kg

DRUGS (2)
  1. BUPROPION XL [Concomitant]
     Active Substance: BUPROPION
     Dates: start: 20180101, end: 20190606
  2. NO BUPROPION XL [Suspect]
     Active Substance: BUPROPION

REACTIONS (1)
  - Drug ineffective [None]

NARRATIVE: CASE EVENT DATE: 20190101
